FAERS Safety Report 9646731 (Version 2)
Quarter: 2013Q4

REPORT INFORMATION
  Report Type: Spontaneous
  Country: US (occurrence: US)
  Receive Date: 20131027
  Receipt Date: 20131027
  Transmission Date: 20140711
  Serious: Yes (Other)
  Sender: FDA-Public Use
  Company Number: US-NAPPMUNDI-USA-2013-0101245

PATIENT
  Sex: Female

DRUGS (1)
  1. OXYCONTIN TABLETS [Suspect]
     Indication: BACK PAIN
     Dosage: 40 MG, TID
     Route: 048
     Dates: start: 1997, end: 1998

REACTIONS (1)
  - Hallucination [Recovered/Resolved]
